FAERS Safety Report 19939621 (Version 1)
Quarter: 2021Q4

REPORT INFORMATION
  Report Type: Spontaneous
  Country: US (occurrence: US)
  Receive Date: 20211011
  Receipt Date: 20211011
  Transmission Date: 20220303
  Serious: Yes (Other)
  Sender: FDA-Public Use
  Company Number: US-PFIZER INC-202101286183

PATIENT
  Age: 54 Year
  Sex: Female
  Weight: 89.36 kg

DRUGS (2)
  1. TRIMETHOBENZAMIDE HYDROCHLORIDE [Suspect]
     Active Substance: TRIMETHOBENZAMIDE HYDROCHLORIDE
     Indication: Nausea
     Dosage: 300 MG, 3X/DAY
     Route: 048
     Dates: end: 202009
  2. TRIMETHOBENZAMIDE HYDROCHLORIDE [Suspect]
     Active Substance: TRIMETHOBENZAMIDE HYDROCHLORIDE
     Indication: Vomiting

REACTIONS (1)
  - Feeling abnormal [Not Recovered/Not Resolved]

NARRATIVE: CASE EVENT DATE: 20200901
